FAERS Safety Report 4832694-0 (Version None)
Quarter: 2005Q4

REPORT INFORMATION
  Report Type: 
  Country: None (occurrence: None)
  Receive Date: 20051117
  Receipt Date: 20051117
  Transmission Date: 20060501
  Serious: Yes (Other)
  Sender: FDA-Public Use
  Company Number: None

PATIENT
  Age: 33 Year
  Sex: Female
  Weight: 111.1313 kg

DRUGS (1)
  1. MIRENA [Suspect]
     Indication: CONTRACEPTION
     Dates: start: 20041227, end: 20051110

REACTIONS (7)
  - ARTHRALGIA [None]
  - BACK PAIN [None]
  - FATIGUE [None]
  - MOOD ALTERED [None]
  - PELVIC PAIN [None]
  - RASH [None]
  - WEIGHT INCREASED [None]
